FAERS Safety Report 5195762-2 (Version None)
Quarter: 2006Q4

REPORT INFORMATION
  Report Type: 
  Country: None (occurrence: None)
  Receive Date: 20061227
  Receipt Date: 20061215
  Transmission Date: 20070319
  Serious: Yes (Other)
  Sender: FDA-Public Use
  Company Number: 2006PV027000

PATIENT
  Age: 51 Year
  Sex: Female

DRUGS (4)
  1. BYETTA [Suspect]
     Indication: DIABETES MELLITUS NON-INSULIN-DEPENDENT
     Dosage: SEE IMAGE, SC
     Route: 058
     Dates: start: 20061101
  2. METFORMIN [Concomitant]
  3. ACTOS [Concomitant]
  4. GLYBURIDE [Concomitant]

REACTIONS (7)
  - BLOOD GLUCOSE DECREASED [None]
  - BLOOD GLUCOSE INCREASED [None]
  - CONVULSION [None]
  - DECREASED APPETITE [None]
  - DIABETIC COMPLICATION [None]
  - DRUG EFFECT DECREASED [None]
  - MALAISE [None]
